FAERS Safety Report 6183968-5 (Version None)
Quarter: 2009Q2

REPORT INFORMATION
  Report Type: 
  Country: None (occurrence: None)
  Receive Date: 20090506
  Receipt Date: 20090506
  Transmission Date: 20091009
  Serious: Yes (Death)
  Sender: FDA-Public Use
  Company Number: None

PATIENT
  Sex: Male

DRUGS (2)
  1. REVLIMID [Suspect]
     Dosage: 15MG DAILY ORAL
     Route: 048
     Dates: start: 20070607, end: 20070619
  2. LOVASTATIN [Concomitant]

REACTIONS (4)
  - BLOODY DISCHARGE [None]
  - GENERAL PHYSICAL HEALTH DETERIORATION [None]
  - HAEMOPTYSIS [None]
  - THROMBOCYTOPENIA [None]
